FAERS Safety Report 4632427-7 (Version None)
Quarter: 2005Q2

REPORT INFORMATION
  Report Type: 
  Country: None (occurrence: None)
  Receive Date: 20050411
  Receipt Date: 20050221
  Transmission Date: 20051028
  Serious: Yes (Life-Threatening, Hospitalization, Other)
  Sender: FDA-Public Use
  Company Number: PHBS2005JP02737

PATIENT
  Age: 73 Year
  Sex: Male
  Weight: 62 kg

DRUGS (10)
  1. WARFARIN SODIUM [Concomitant]
     Dosage: 2 MG/DAY
     Route: 048
  2. BAKTAR [Concomitant]
     Dosage: 1 DF, QD
     Route: 048
     Dates: start: 20050205
  3. NEORAL [Suspect]
     Indication: NEPHROTIC SYNDROME
     Dosage: 100 MG/DAY
     Route: 048
     Dates: start: 20050119, end: 20050119
  4. NEORAL [Suspect]
     Dosage: 200 MG/DAY
     Route: 048
     Dates: start: 20050120, end: 20050130
  5. NEORAL [Suspect]
     Dosage: 100 MG/DAY
     Route: 048
     Dates: start: 20050131, end: 20050204
  6. NEORAL [Suspect]
     Dosage: 50 MG/DAY
     Route: 048
     Dates: start: 20050205, end: 20050218
  7. SANDIMMUNE [Suspect]
     Indication: NEPHROTIC SYNDROME
     Dosage: 100 MG/DAY
     Route: 042
     Dates: start: 20050219, end: 20050220
  8. TAGAMET [Concomitant]
     Dosage: 200 MG/DAY
     Route: 048
  9. NU LOTAN [Concomitant]
     Dosage: 25 MG/DAY
     Route: 048
  10. FLUMARIN [Concomitant]
     Indication: PNEUMONIA
     Dosage: 0.5 G/DAY
     Route: 042
     Dates: start: 20050214, end: 20050221

REACTIONS (22)
  - ANAPHYLACTIC SHOCK [None]
  - BLOOD BILIRUBIN INCREASED [None]
  - BLOOD LACTATE DEHYDROGENASE INCREASED [None]
  - CHEYNE-STOKES RESPIRATION [None]
  - CYANOSIS [None]
  - CYTOMEGALOVIRUS ANTIBODY POSITIVE [None]
  - DEHYDRATION [None]
  - DISSEMINATED INTRAVASCULAR COAGULATION [None]
  - FUNGUS SEROLOGY TEST POSITIVE [None]
  - GENERAL NUTRITION DISORDER [None]
  - HAEMATOCRIT INCREASED [None]
  - HYPOALBUMINAEMIA [None]
  - HYPOTENSION [None]
  - INFECTION [None]
  - LOSS OF CONSCIOUSNESS [None]
  - MENTAL DISORDER [None]
  - MULTI-ORGAN FAILURE [None]
  - NEPHROTIC SYNDROME [None]
  - PNEUMONIA [None]
  - SYSTEMIC INFLAMMATORY RESPONSE SYNDROME [None]
  - TACHYCARDIA [None]
  - TRANSAMINASES INCREASED [None]
